FAERS Safety Report 9313181 (Version 1)
Quarter: 2013Q2

REPORT INFORMATION
  Report Type: Report from Study
  Country: US (occurrence: US)
  Receive Date: 20130528
  Receipt Date: 20130528
  Transmission Date: 20140414
  Serious: No
  Sender: FDA-Public Use
  Company Number: US-ABBOTT-13P-163-1052619-00

PATIENT
  Age: 45 Year
  Sex: Female
  Weight: 83.54 kg

DRUGS (5)
  1. ANDROGEL [Suspect]
     Indication: PRODUCT USED FOR UNKNOWN INDICATION
  2. DEXILANT [Concomitant]
     Indication: GASTROOESOPHAGEAL REFLUX DISEASE
  3. CARAFATE [Concomitant]
     Indication: GASTRIC ULCER
  4. RELPAX [Concomitant]
     Indication: MIGRAINE
  5. PHENERGAN [Concomitant]
     Indication: NAUSEA

REACTIONS (2)
  - Erythema [Recovering/Resolving]
  - Exposure via partner [Recovered/Resolved]
